FAERS Safety Report 4996871-0 (Version None)
Quarter: 2006Q2

REPORT INFORMATION
  Report Type: 
  Country: None (occurrence: None)
  Receive Date: 20060509
  Receipt Date: 20030825
  Transmission Date: 20061013
  Serious: Yes (Disabling, Other)
  Sender: FDA-Public Use
  Company Number: US-GLAXOSMITHKLINE-A0423677A

PATIENT
  Sex: Male

DRUGS (4)
  1. PAXIL [Suspect]
     Indication: DEPRESSION
     Route: 048
     Dates: start: 20000801
  2. PAXIL CR [Suspect]
     Indication: DEPRESSION
     Dosage: 50MG SEE DOSAGE TEXT
     Route: 048
     Dates: start: 20021018, end: 20030423
  3. KLONOPIN [Concomitant]
  4. ZOLOFT [Concomitant]
     Dosage: 50MG PER DAY
     Route: 048

REACTIONS (30)
  - AGGRESSION [None]
  - AGITATION [None]
  - AMNESIA [None]
  - ANAESTHESIA [None]
  - ANGER [None]
  - APATHY [None]
  - COGNITIVE DISORDER [None]
  - CONDITION AGGRAVATED [None]
  - CONFUSIONAL STATE [None]
  - COORDINATION ABNORMAL [None]
  - DEPRESSION [None]
  - DIZZINESS [None]
  - DRUG WITHDRAWAL SYNDROME [None]
  - GAIT DISTURBANCE [None]
  - GRAND MAL CONVULSION [None]
  - HALLUCINATION, VISUAL [None]
  - HYPOAESTHESIA [None]
  - INSOMNIA [None]
  - LETHARGY [None]
  - MALAISE [None]
  - MENINGIOMA [None]
  - MOOD SWINGS [None]
  - NIGHTMARE [None]
  - PALPITATIONS [None]
  - PARAESTHESIA [None]
  - PETIT MAL EPILEPSY [None]
  - SLUGGISHNESS [None]
  - STRESS [None]
  - SUICIDAL IDEATION [None]
  - TINNITUS [None]
